FAERS Safety Report 6581155-X (Version None)
Quarter: 2010Q1

REPORT INFORMATION
  Report Type: 
  Country: None (occurrence: None)
  Receive Date: 20100215
  Receipt Date: 20100202
  Transmission Date: 20100710
  Serious: Yes (Other)
  Sender: FDA-Public Use
  Company Number: US-MYLANLABS-2009S1022047

PATIENT
  Age: 19 Year
  Sex: Female

DRUGS (3)
  1. SOTRET [Suspect]
     Route: 048
     Dates: start: 20090421
  2. AMNESTEEM [Suspect]
     Route: 048
  3. AMNESTEEM [Suspect]
     Route: 048
     Dates: end: 20091012

REACTIONS (2)
  - DRUG EXPOSURE BEFORE PREGNANCY [None]
  - VAGINAL HAEMORRHAGE [None]
